FAERS Safety Report 7716955-3 (Version None)
Quarter: 2011Q3

REPORT INFORMATION
  Report Type: 
  Country: None (occurrence: None)
  Receive Date: 20110829
  Receipt Date: 20110826
  Transmission Date: 20111222
  Serious: Yes (Life-Threatening, Hospitalization)
  Sender: FDA-Public Use
  Company Number: US-B.I. PHARMACEUTICALS,INC./RIDGEFIELD-2011-BP-19219BP

PATIENT
  Sex: Female
  Weight: 68.04 kg

DRUGS (7)
  1. LIPITOR [Concomitant]
     Dosage: 20 MG
     Route: 048
     Dates: start: 20110525
  2. PRADAXA [Suspect]
     Indication: ATRIAL FIBRILLATION
     Dosage: 150 MG
     Route: 048
     Dates: start: 20110615, end: 20110726
  3. METOPROLOL SUCCINATE EXTENDED RELEASE [Concomitant]
     Dosage: 50 MG
     Route: 048
     Dates: start: 20110104
  4. ASPIRIN [Concomitant]
     Route: 048
  5. ZOLPIDEM TARTRATE [Concomitant]
     Route: 048
     Dates: start: 20110615
  6. DILTIAZEM [Concomitant]
     Dosage: 120 MG
     Route: 048
  7. HYDROCORTISONE [Concomitant]
     Dates: start: 20110104

REACTIONS (12)
  - NAUSEA [None]
  - HYPOAESTHESIA [None]
  - HEART RATE INCREASED [None]
  - SWOLLEN TONGUE [None]
  - NIGHTMARE [None]
  - ECCHYMOSIS [None]
  - ANGIOEDEMA [None]
  - ABDOMINAL DISCOMFORT [None]
  - HEADACHE [None]
  - DIZZINESS [None]
  - INCREASED TENDENCY TO BRUISE [None]
  - ABDOMINAL PAIN [None]
